FAERS Safety Report 12100860 (Version 1)
Quarter: 2016Q1

REPORT INFORMATION
  Report Type: Spontaneous
  Country: PT (occurrence: PT)
  Receive Date: 20160222
  Receipt Date: 20160222
  Transmission Date: 20160526
  Serious: Yes (Other)
  Sender: FDA-Public Use
  Company Number: PT-BAYER-2016-029684

PATIENT
  Age: 62 Year
  Sex: Male

DRUGS (2)
  1. CLOPIDOGREL [Suspect]
     Active Substance: CLOPIDOGREL BISULFATE
     Dosage: UNK
  2. ACETYLSALICYLIC ACID (} 100 MG) [Suspect]
     Active Substance: ASPIRIN
     Dosage: 100 MG/D, UNK
     Dates: start: 201406

REACTIONS (4)
  - Peripheral artery stenosis [None]
  - Skin ulcer [None]
  - Peripheral ischaemia [None]
  - Drug ineffective [None]

NARRATIVE: CASE EVENT DATE: 201502
